FAERS Safety Report 20240397 (Version 1)
Quarter: 2021Q4

REPORT INFORMATION
  Report Type: Spontaneous
  Country: CH (occurrence: None)
  Receive Date: 20211228
  Receipt Date: 20211228
  Transmission Date: 20220303
  Serious: Yes (Other)
  Sender: FDA-Public Use
  Company Number: CH-ROCHE-2988431

PATIENT
  Sex: Female

DRUGS (6)
  1. TRASTUZUMAB [Suspect]
     Active Substance: TRASTUZUMAB
     Indication: Product used for unknown indication
     Route: 065
  2. PERTUZUMAB [Suspect]
     Active Substance: PERTUZUMAB
     Indication: Product used for unknown indication
     Route: 065
  3. KADCYLA [Suspect]
     Active Substance: ADO-TRASTUZUMAB EMTANSINE
     Indication: Product used for unknown indication
     Route: 065
  4. VINORELBINE [Concomitant]
     Active Substance: VINORELBINE TARTRATE
  5. TUKYSA [Concomitant]
     Active Substance: TUCATINIB
  6. CAPECITABINE [Concomitant]
     Active Substance: CAPECITABINE
     Route: 048

REACTIONS (1)
  - Disease progression [Unknown]
